FAERS Safety Report 5007432-1 (Version None)
Quarter: 2006Q2

REPORT INFORMATION
  Report Type: 
  Country: None (occurrence: None)
  Receive Date: 20060519
  Receipt Date: 20060519
  Transmission Date: 20061013
  Serious: Yes (Life-Threatening)
  Sender: FDA-Public Use
  Company Number: None

PATIENT
  Sex: Male
  Weight: 106.1417 kg

DRUGS (8)
  1. PACLITAXEL [Suspect]
     Indication: LUNG NEOPLASM MALIGNANT
     Dosage: 400 MG ONCE IV
     Route: 042
     Dates: start: 20060112, end: 20060112
  2. DEXAMETHASONE TAB [Concomitant]
  3. ONDANSETRON HCL [Concomitant]
  4. CARBOPLATIN [Concomitant]
  5. GABAPENTIN [Concomitant]
  6. HYDROCHLOROTHIAZIDE [Concomitant]
  7. HYDROCODONE 5/ACETAMINOPHEN 500 MG [Concomitant]
  8. TRAZODONE HCL [Concomitant]

REACTIONS (2)
  - INJECTION SITE IRRITATION [None]
  - VASOCONSTRICTION [None]
